FAERS Safety Report 7142038-X (Version None)
Quarter: 2010Q4

REPORT INFORMATION
  Report Type: 
  Country: None (occurrence: None)
  Receive Date: 20101207
  Receipt Date: 20101129
  Transmission Date: 20110411
  Serious: Yes (Death, Hospitalization, Other)
  Sender: FDA-Public Use
  Company Number: B0662101A

PATIENT
  Age: 44 Year
  Sex: Female

DRUGS (1)
  1. FLOLAN [Suspect]
     Indication: PULMONARY ARTERIAL HYPERTENSION
     Route: 042

REACTIONS (7)
  - CHEST X-RAY ABNORMAL [None]
  - CONDITION AGGRAVATED [None]
  - PLEURAL EFFUSION [None]
  - PULMONARY ARTERY WALL HYPERTROPHY [None]
  - PULMONARY OEDEMA [None]
  - PULMONARY VEIN OCCLUSION [None]
  - PULMONARY VENO-OCCLUSIVE DISEASE [None]
